FAERS Safety Report 21255913 (Version 4)
Quarter: 2022Q3

REPORT INFORMATION
  Report Type: Spontaneous
  Country: CN (occurrence: CN)
  Receive Date: 20220825
  Receipt Date: 20220916
  Transmission Date: 20221027
  Serious: Yes (Other)
  Sender: FDA-Public Use
  Company Number: CN-GILEAD-2022-0594232

PATIENT
  Age: 32 Year
  Sex: Male

DRUGS (7)
  1. AMBISOME [Suspect]
     Active Substance: AMPHOTERICIN B
     Indication: Meningitis cryptococcal
     Dosage: 120 MG, QD
     Route: 065
     Dates: start: 20220720
  2. AMBISOME [Suspect]
     Active Substance: AMPHOTERICIN B
     Dosage: 150 MG, QD
     Route: 065
     Dates: start: 20220723, end: 20220821
  3. GENVOYA [Suspect]
     Active Substance: COBICISTAT\ELVITEGRAVIR\EMTRICITABINE\TENOFOVIR ALAFENAMIDE FUMARATE
     Indication: HIV infection
     Dosage: 1 DOSAGE FORM, QD
     Route: 048
     Dates: start: 20220316
  4. FLUOROURACIL SODIUM [Concomitant]
     Active Substance: FLUOROURACIL SODIUM
  5. MEROPENEM [Concomitant]
     Active Substance: MEROPENEM
  6. LEVOFLOXACIN [Concomitant]
     Active Substance: LEVOFLOXACIN
  7. UNSPECIFIED INGREDIENT [Concomitant]
     Active Substance: UNSPECIFIED INGREDIENT

REACTIONS (4)
  - Pneumonia [Not Recovered/Not Resolved]
  - Meningitis cryptococcal [Recovered/Resolved]
  - Platelet count decreased [Not Recovered/Not Resolved]
  - Malnutrition [Recovering/Resolving]
